FAERS Safety Report 20706067 (Version 1)
Quarter: 2022Q2

REPORT INFORMATION
  Report Type: Spontaneous
  Country: US (occurrence: US)
  Receive Date: 20220413
  Receipt Date: 20220413
  Transmission Date: 20220721
  Serious: No
  Sender: FDA-Public Use
  Company Number: US-MYLANLABS-2022M1021093

PATIENT
  Sex: Female
  Weight: 64.86 kg

DRUGS (1)
  1. ESTRADIOL [Suspect]
     Active Substance: ESTRADIOL
     Indication: Atrophic vulvovaginitis
     Dosage: 0.5 MILLIGRAM, HS (THE NIGHT I USED)
     Route: 067
     Dates: start: 20220303

REACTIONS (8)
  - Erythema [Recovering/Resolving]
  - Pruritus [Unknown]
  - Sensitive skin [Unknown]
  - Burning sensation [Unknown]
  - Oral infection [Unknown]
  - Dry mouth [Unknown]
  - Hyperaesthesia [Unknown]
  - Oral pain [Unknown]
